FAERS Safety Report 6936540-0 (Version None)
Quarter: 2010Q3

REPORT INFORMATION
  Report Type: 
  Country: None (occurrence: None)
  Receive Date: 20100823
  Receipt Date: 20100817
  Transmission Date: 20110219
  Serious: Yes (Life-Threatening, Hospitalization, Disabling, Other)
  Sender: FDA-Public Use
  Company Number: US-CELGENEUS-163-21880-10042517

PATIENT
  Sex: Male

DRUGS (12)
  1. REVLIMID [Suspect]
     Indication: MULTIPLE MYELOMA
     Route: 048
     Dates: start: 20100406, end: 20100420
  2. REVLIMID [Suspect]
     Route: 048
     Dates: start: 20100427, end: 20100430
  3. ALLOPURINOL [Suspect]
     Route: 048
     Dates: start: 20100406, end: 20100427
  4. ALLOPURINOL [Suspect]
     Indication: PROPHYLAXIS
  5. FAMCICLOVIR [Concomitant]
     Indication: HERPES ZOSTER
     Route: 048
     Dates: start: 20100405
  6. FAMCICLOVIR [Concomitant]
     Indication: PROPHYLAXIS
  7. BORTEZOMIB [Concomitant]
     Indication: MULTIPLE MYELOMA
     Route: 051
     Dates: start: 20100406, end: 20100510
  8. DEXAMETHASONE [Concomitant]
     Indication: MULTIPLE MYELOMA
     Route: 048
     Dates: start: 20100406, end: 20100513
  9. DIETARY SUPPLEMENTS [Concomitant]
     Indication: PRODUCT USED FOR UNKNOWN INDICATION
     Route: 065
  10. METOPROLOL TARTRATE [Concomitant]
     Indication: PRODUCT USED FOR UNKNOWN INDICATION
     Route: 065
     Dates: end: 20100430
  11. NIFEDIPINE [Concomitant]
     Indication: PRODUCT USED FOR UNKNOWN INDICATION
     Route: 065
     Dates: end: 20100430
  12. VITAMINS [Concomitant]
     Indication: PRODUCT USED FOR UNKNOWN INDICATION
     Route: 065

REACTIONS (7)
  - ALANINE AMINOTRANSFERASE INCREASED [None]
  - ANGIOEDEMA [None]
  - ASPARTATE AMINOTRANSFERASE INCREASED [None]
  - BLOOD ALKALINE PHOSPHATASE INCREASED [None]
  - HYPOTENSION [None]
  - LEUKOCYTOCLASTIC VASCULITIS [None]
  - LOSS OF CONSCIOUSNESS [None]
